FAERS Safety Report 16296408 (Version 1)
Quarter: 2019Q2

REPORT INFORMATION
  Report Type: Spontaneous
  Country: US (occurrence: US)
  Receive Date: 20190510
  Receipt Date: 20190510
  Transmission Date: 20190711
  Serious: No
  Sender: FDA-Public Use
  Company Number: US-VIIV HEALTHCARE LIMITED-US2019071643

PATIENT
  Sex: Female

DRUGS (1)
  1. RETROVIR [Suspect]
     Active Substance: ZIDOVUDINE
     Indication: HIV INFECTION
     Dosage: 1 DOSE, UNK
     Route: 042

REACTIONS (2)
  - Exposure during pregnancy [Unknown]
  - Extravasation [Unknown]

NARRATIVE: CASE EVENT DATE: 20190419
